FAERS Safety Report 7649812-1 (Version None)
Quarter: 2011Q3

REPORT INFORMATION
  Report Type: 
  Country: None (occurrence: None)
  Receive Date: 20110802
  Receipt Date: 20110727
  Transmission Date: 20111222
  Serious: Yes (Death, Hospitalization, Other)
  Sender: FDA-Public Use
  Company Number: KR-BAYER-2011-063634

PATIENT
  Age: 61 Year
  Sex: Male

DRUGS (3)
  1. GADAVIST [Suspect]
     Dosage: UNK
     Dates: start: 20110401, end: 20110401
  2. GADAVIST [Suspect]
     Indication: NUCLEAR MAGNETIC RESONANCE IMAGING
     Dosage: 10 ML, QD
     Dates: start: 20110715, end: 20110715
  3. GADAVIST [Suspect]
     Dosage: UNK
     Dates: start: 20100622, end: 20100622

REACTIONS (5)
  - PULMONARY OEDEMA [None]
  - CHEST PAIN [None]
  - SHOCK [None]
  - DYSPNOEA [None]
  - SYNCOPE [None]
